FAERS Safety Report 12283718 (Version 1)
Quarter: 2016Q2

REPORT INFORMATION
  Report Type: Spontaneous
  Country: US (occurrence: US)
  Receive Date: 20160419
  Receipt Date: 20160419
  Transmission Date: 20160815
  Serious: No
  Sender: FDA-Public Use
  Company Number: US-BANPHARM-20154516

PATIENT
  Age: 50 Year
  Sex: Male
  Weight: 97.52 kg

DRUGS (2)
  1. MASSAGING GEL INSOLES M 1 PAIR [Concomitant]
     Dates: start: 20151204, end: 20151207
  2. ALEVE [Suspect]
     Active Substance: NAPROXEN SODIUM
     Dosage: 2 DF, ONCE,
     Route: 048
     Dates: start: 2015

REACTIONS (3)
  - Abdominal discomfort [Unknown]
  - Glossodynia [Unknown]
  - Product quality issue [Unknown]
